FAERS Safety Report 8979256 (Version 2)
Quarter: 2013Q1

REPORT INFORMATION
  Report Type: Spontaneous
  Country: US (occurrence: US)
  Receive Date: 20121221
  Receipt Date: 20130201
  Transmission Date: 20140127
  Serious: Yes (Death, Hospitalization)
  Sender: FDA-Public Use
  Company Number: US-TEVA-377202USA

PATIENT
  Age: 86 Year
  Sex: Male

DRUGS (20)
  1. TREANDA [Suspect]
     Indication: NON-HODGKIN^S LYMPHOMA UNSPECIFIED HISTOLOGY AGGRESSIVE STAGE I
     Dosage: C1-D1
     Dates: start: 20121127, end: 20121127
  2. TREANDA [Suspect]
     Dosage: C1-D2
     Dates: start: 20121128, end: 20121128
  3. RITUXAN [Suspect]
     Indication: NON-HODGKIN^S LYMPHOMA UNSPECIFIED HISTOLOGY AGGRESSIVE STAGE I
     Dates: start: 20121127, end: 20121127
  4. RITUXAN [Suspect]
     Route: 042
     Dates: start: 20121128, end: 20121128
  5. RASBURICASE [Concomitant]
     Indication: HYPERURICAEMIA
     Route: 042
     Dates: start: 20121128, end: 20121128
  6. NEULASTA [Concomitant]
     Dosage: 6 MILLIGRAM DAILY;
     Route: 058
     Dates: start: 20121129, end: 20121129
  7. ACETAMINOPHEN [Concomitant]
     Dosage: 650 MILLIGRAM DAILY;
     Route: 048
     Dates: start: 20121127, end: 20121128
  8. DEXAMETHASONE SODIUM PHOSPHATE [Concomitant]
     Dosage: 12 MILLIGRAM DAILY;
     Route: 042
     Dates: start: 20121127, end: 20121128
  9. DIPHENHYDRAMINE HYDROCHLORIDE [Concomitant]
     Dosage: 50 MILLIGRAM DAILY;
     Route: 042
     Dates: start: 20121127, end: 20121127
  10. DIPHENHYDRAMINE HYDROCHLORIDE [Concomitant]
     Dosage: 25 MILLIGRAM DAILY;
     Route: 042
     Dates: start: 20121128, end: 20121128
  11. FOSAPREPITANT DIMEGLUMINE [Concomitant]
     Route: 042
     Dates: start: 20121127, end: 20121127
  12. LORAZEPAM [Concomitant]
     Dosage: .5 MILLIGRAM DAILY;
     Route: 048
     Dates: start: 20121128, end: 20121128
  13. PALONOSETRON HYDROCHLORIDE [Concomitant]
     Dosage: .25 MILLIGRAM DAILY;
     Route: 042
     Dates: start: 20121127, end: 20121127
  14. WARFARIN SODIUM [Concomitant]
     Route: 048
     Dates: start: 20101028
  15. FUROSEMIDE [Concomitant]
     Dosage: 40 MILLIGRAM DAILY;
     Route: 048
  16. NAPROXEN [Concomitant]
     Dosage: 500 MILLIGRAM DAILY;
     Route: 048
  17. PROTONIX [Concomitant]
     Dosage: 40 MILLIGRAM DAILY;
     Route: 042
  18. SOTALOL HYDROCHLORIDE [Concomitant]
     Dosage: 80 MILLIGRAM DAILY;
     Route: 048
  19. XALANTAN [Concomitant]
     Dosage: DAILY
     Route: 047
  20. ULORIC [Concomitant]
     Dosage: 40 MILLIGRAM DAILY;
     Route: 048
     Dates: start: 20121114

REACTIONS (4)
  - Chest pain [Fatal]
  - Haemolytic anaemia [Fatal]
  - Renal failure chronic [Fatal]
  - Multi-organ failure [Fatal]
